FAERS Safety Report 8416717-8 (Version None)
Quarter: 2012Q2

REPORT INFORMATION
  Report Type: 
  Country: None (occurrence: None)
  Receive Date: 20120606
  Receipt Date: 20120523
  Transmission Date: 20120825
  Serious: Yes (Life-Threatening, Hospitalization)
  Sender: FDA-Public Use
  Company Number: BR-INCYTE CORPORATION-2012IN000921

PATIENT
  Sex: Female
  Weight: 69 kg

DRUGS (6)
  1. DIPIRONA [Concomitant]
  2. DIAZEPAM [Concomitant]
  3. INC424 [Suspect]
     Indication: MYELOFIBROSIS
     Dosage: 15 MG, BID
     Route: 048
     Dates: start: 20120106, end: 20120522
  4. METHADON HCL TAB [Concomitant]
  5. FLUOXETINE [Concomitant]
  6. OMEPRAZOLE [Concomitant]

REACTIONS (3)
  - ASTHENIA [None]
  - DYSPNOEA [None]
  - ANAEMIA [None]
